FAERS Safety Report 7543169-2 (Version None)
Quarter: 2011Q2

REPORT INFORMATION
  Report Type: 
  Country: None (occurrence: None)
  Receive Date: 20110613
  Receipt Date: 20110608
  Transmission Date: 20111010
  Serious: No
  Sender: FDA-Public Use
  Company Number: US-MERCK-1105USA02064

PATIENT
  Age: 74 Year
  Sex: Male
  Weight: 91 kg

DRUGS (8)
  1. SEMUSTINE AND VINCRISTINE SULFATE AND CYCLOPHOSPHAMIDE [Concomitant]
     Route: 065
  2. SINEMET [Suspect]
     Indication: PARKINSON'S DISEASE
     Route: 048
     Dates: start: 20110406
  3. METFORMIN [Concomitant]
     Route: 065
  4. FOLIC ACID [Concomitant]
     Route: 065
  5. JANUVIA [Concomitant]
     Route: 048
  6. PREDNISONE [Concomitant]
     Route: 065
  7. METHOTREXATE [Concomitant]
     Route: 065
  8. CARBIDOPA + LEVODOPA [Suspect]
     Indication: PARKINSON'S DISEASE
     Route: 048
     Dates: start: 20110501

REACTIONS (4)
  - IRRITABILITY [None]
  - PARKINSON'S DISEASE [None]
  - DYSKINESIA [None]
  - DRUG INEFFECTIVE [None]
